FAERS Safety Report 7497499-3 (Version None)
Quarter: 2011Q2

REPORT INFORMATION
  Report Type: 
  Country: None (occurrence: None)
  Receive Date: 20110523
  Receipt Date: 20110509
  Transmission Date: 20111010
  Serious: Yes (Other)
  Sender: FDA-Public Use
  Company Number: US-UCBSA-033310

PATIENT
  Sex: Female

DRUGS (1)
  1. CIMZIA [Suspect]
     Indication: CROHN'S DISEASE
     Route: 058
     Dates: start: 20110330

REACTIONS (5)
  - CATARACT [None]
  - FATIGUE [None]
  - MALAISE [None]
  - JOINT SWELLING [None]
  - ARTHRALGIA [None]
